FAERS Safety Report 6103945-X (Version None)
Quarter: 2009Q1

REPORT INFORMATION
  Report Type: 
  Country: None (occurrence: None)
  Receive Date: 20090305
  Receipt Date: 20090302
  Transmission Date: 20090719
  Serious: Yes (Hospitalization)
  Sender: FDA-Public Use
  Company Number: B0557970A

PATIENT
  Age: 65 Year
  Sex: Female

DRUGS (7)
  1. PAXIL [Suspect]
     Indication: DEPRESSION
     Dosage: 10MG PER DAY
     Route: 048
     Dates: start: 20090116
  2. DEPAKENE [Concomitant]
     Indication: DRUG USE FOR UNKNOWN INDICATION
     Dosage: 400MG THREE TIMES PER DAY
     Route: 048
  3. PHENOBARBITAL TAB [Concomitant]
     Indication: DRUG USE FOR UNKNOWN INDICATION
     Dosage: 90MG PER DAY
     Route: 048
  4. SELBEX [Concomitant]
     Indication: DRUG USE FOR UNKNOWN INDICATION
     Route: 048
  5. PLAVIX [Concomitant]
     Indication: DRUG USE FOR UNKNOWN INDICATION
     Route: 048
  6. MAGLAX [Concomitant]
     Indication: DRUG USE FOR UNKNOWN INDICATION
     Dosage: 250MG THREE TIMES PER DAY
     Route: 048
  7. MYSLEE [Concomitant]
     Indication: DRUG USE FOR UNKNOWN INDICATION
     Dosage: 5MG PER DAY
     Route: 048

REACTIONS (2)
  - FEELING DRUNK [None]
  - HYPONATRAEMIA [None]
